FAERS Safety Report 9343788 (Version 1)
Quarter: 2013Q2

REPORT INFORMATION
  Report Type: Spontaneous
  Country: US (occurrence: US)
  Receive Date: 20130612
  Receipt Date: 20130612
  Transmission Date: 20140414
  Serious: Yes (Hospitalization)
  Sender: FDA-Public Use
  Company Number: US-ACCORD-017959

PATIENT
  Age: 82 Year
  Sex: Male

DRUGS (10)
  1. AMLODIPINE [Suspect]
     Indication: HYPERTENSION
  2. HYDRALAZINE [Suspect]
     Indication: HYPERTENSION
     Route: 048
  3. DIGOXIN [Concomitant]
     Indication: ATRIAL FIBRILLATION
  4. FENOFIBRATE [Concomitant]
     Indication: HYPERLIPIDAEMIA
  5. NOVOLIN [Concomitant]
     Indication: TYPE 1 DIABETES MELLITUS
     Dosage: 70/30
  6. GLIPIZIDE [Concomitant]
     Indication: TYPE 1 DIABETES MELLITUS
     Route: 048
  7. ASPIRIN [Suspect]
     Indication: ANTICOAGULANT THERAPY
     Route: 048
  8. METOPROLOL TARTRATE [Suspect]
     Indication: HYPERTENSION
     Route: 048
  9. ALLOPURINOL [Concomitant]
     Indication: GOUT
  10. WARFARIN [Suspect]
     Indication: ANTICOAGULANT THERAPY
     Dosage: UNKNOWN DOSE DAILY
     Route: 048

REACTIONS (3)
  - Treatment noncompliance [Unknown]
  - Lacrimal haemorrhage [Recovered/Resolved]
  - Hypertension [Recovered/Resolved]
